FAERS Safety Report 8127987-8 (Version None)
Quarter: 2012Q1

REPORT INFORMATION
  Report Type: 
  Country: None (occurrence: None)
  Receive Date: 20120210
  Receipt Date: 20120206
  Transmission Date: 20120608
  Serious: Yes (Death, Life-Threatening, Hospitalization, Other)
  Sender: FDA-Public Use
  Company Number: HU-ASTRAZENECA-2012SE04790

PATIENT
  Age: 28610 Day
  Sex: Male

DRUGS (8)
  1. ASPIRIN [Concomitant]
     Route: 048
  2. ALPRAZOLAM [Concomitant]
     Indication: ANXIETY
     Route: 048
  3. PANTOPRAZOLE [Concomitant]
     Indication: GASTRITIS PROPHYLAXIS
     Route: 048
  4. ISOSORBID-MONONITRATE [Concomitant]
     Indication: THROMBOSIS PROPHYLAXIS
     Route: 062
  5. PLAVIX [Suspect]
     Indication: CORONARY ARTERY DISEASE
     Route: 048
     Dates: start: 20110706, end: 20120115
  6. ROSUVASTATIN [Concomitant]
     Indication: HYPERCHOLESTEROLAEMIA
     Route: 048
  7. RAMIPRIL [Concomitant]
     Indication: HYPERTONIA
     Route: 048
  8. METOCLOPRAMIDE [Concomitant]
     Indication: HYPERTONIA
     Route: 048

REACTIONS (14)
  - DECREASED APPETITE [None]
  - C-REACTIVE PROTEIN INCREASED [None]
  - GAMMA-GLUTAMYLTRANSFERASE INCREASED [None]
  - HAEMATEMESIS [None]
  - WEIGHT DECREASED [None]
  - BLOOD CREATININE INCREASED [None]
  - AORTIC RUPTURE [None]
  - AORTO-DUODENAL FISTULA [None]
  - HAEMATOCRIT DECREASED [None]
  - ALANINE AMINOTRANSFERASE INCREASED [None]
  - PLATELET COUNT INCREASED [None]
  - WHITE BLOOD CELL COUNT INCREASED [None]
  - HAEMOGLOBIN DECREASED [None]
  - SHOCK HAEMORRHAGIC [None]
